FAERS Safety Report 7313974-6 (Version None)
Quarter: 2011Q1

REPORT INFORMATION
  Report Type: 
  Country: None (occurrence: None)
  Receive Date: 20110225
  Receipt Date: 20110215
  Transmission Date: 20110831
  Serious: Yes (Other)
  Sender: FDA-Public Use
  Company Number: PHHY2011US12617

PATIENT
  Sex: Female

DRUGS (6)
  1. ADVIL [Concomitant]
  2. CELEBREX [Concomitant]
  3. STEROIDS NOS [Concomitant]
  4. RECLAST [Suspect]
     Dosage: 5 MG/100 ML PER YEAR
  5. ALEVE [Concomitant]
  6. BONIVA [Concomitant]

REACTIONS (16)
  - FATIGUE [None]
  - ASTHENIA [None]
  - THROMBOSIS [None]
  - PHLEBITIS [None]
  - DIZZINESS [None]
  - PARAESTHESIA [None]
  - IRRITABILITY [None]
  - INFLAMMATION [None]
  - HYPOAESTHESIA [None]
  - MYALGIA [None]
  - STRESS [None]
  - BURNING SENSATION [None]
  - MUSCLE TWITCHING [None]
  - CONFUSIONAL STATE [None]
  - ARTHRALGIA [None]
  - OEDEMA PERIPHERAL [None]
